FAERS Safety Report 9518700 (Version 3)
Quarter: 2013Q4

REPORT INFORMATION
  Report Type: Spontaneous
  Country: US (occurrence: US)
  Receive Date: 20130912
  Receipt Date: 20131210
  Transmission Date: 20140711
  Serious: Yes (Hospitalization)
  Sender: FDA-Public Use
  Company Number: US-JNJFOC-20130718573

PATIENT
  Age: 57 Year
  Sex: Male
  Weight: 72.12 kg

DRUGS (2)
  1. REMICADE [Suspect]
     Indication: CROHN^S DISEASE
     Route: 042
     Dates: start: 20130429, end: 20130612
  2. PENTASA [Suspect]
     Indication: CROHN^S DISEASE
     Route: 048
     Dates: start: 20130522

REACTIONS (2)
  - Hepatic failure [Recovering/Resolving]
  - Ascites [Unknown]
